FAERS Safety Report 8326257-2 (Version None)
Quarter: 2012Q2

REPORT INFORMATION
  Report Type: 
  Country: None (occurrence: None)
  Receive Date: 20120501
  Receipt Date: 20090817
  Transmission Date: 20120825
  Serious: No
  Sender: FDA-Public Use
  Company Number: 2009BI009896

PATIENT
  Age: 54 Year
  Sex: Female

DRUGS (1)
  1. TYSABRI [Suspect]
     Indication: MULTIPLE SCLEROSIS
     Route: 042
     Dates: start: 20080528

REACTIONS (5)
  - DIZZINESS [None]
  - HYPERTENSION [None]
  - HEADACHE [None]
  - NAUSEA [None]
  - MULTIPLE SCLEROSIS RELAPSE [None]
